FAERS Safety Report 9820751 (Version 1)
Quarter: 2014Q1

REPORT INFORMATION
  Report Type: Other
  Country: DK (occurrence: US)
  Receive Date: 20140116
  Receipt Date: 20140116
  Transmission Date: 20141002
  Serious: Yes (Death)
  Sender: FDA-Public Use
  Company Number: US-FRI-1000052852

PATIENT
  Age: 60 Year
  Sex: Female

DRUGS (4)
  1. CITALOPRAM [Suspect]
  2. HYDROCODONE [Suspect]
  3. ACETAMINOPHEN [Suspect]
  4. TRAMADOL [Suspect]

REACTIONS (1)
  - Toxicity to various agents [Fatal]
